FAERS Safety Report 5101236-7 (Version None)
Quarter: 2006Q3

REPORT INFORMATION
  Report Type: 
  Country: None (occurrence: None)
  Receive Date: 20060911
  Receipt Date: 20060830
  Transmission Date: 20061208
  Serious: Yes (Hospitalization)
  Sender: FDA-Public Use
  Company Number: GB-ROCHE-461534

PATIENT
  Age: 36 Year
  Sex: Male
  Weight: 130 kg

DRUGS (5)
  1. XENICAL [Suspect]
     Indication: OBESITY
     Route: 065
  2. DILTIAZEM HCL [Concomitant]
  3. LISINOPRIL [Concomitant]
  4. METFORMIN [Concomitant]
  5. GLICLAZIDE [Concomitant]

REACTIONS (1)
  - PANCREATITIS [None]
